FAERS Safety Report 4297217-6 (Version None)
Quarter: 2004Q1

REPORT INFORMATION
  Report Type: 
  Country: None (occurrence: None)
  Receive Date: 20040218
  Receipt Date: 20040209
  Transmission Date: 20041129
  Serious: Yes (Other)
  Sender: FDA-Public Use
  Company Number: PHFR2004GB00987

PATIENT
  Age: 71 Year
  Sex: Male

DRUGS (3)
  1. FAMCICLOVIR [Suspect]
     Indication: HERPES ZOSTER
     Dosage: 1 OT, TID
     Route: 048
     Dates: start: 20010212, end: 20010213
  2. CO-PROXAMOL [Concomitant]
     Dosage: 2 OT, QID2SDO
     Route: 065
     Dates: start: 20010212
  3. BENDROFLUAZIDE [Concomitant]
     Dosage: 1 OT, QD
     Route: 065
     Dates: start: 20000504

REACTIONS (3)
  - ABDOMINAL PAIN UPPER [None]
  - ARTHRALGIA [None]
  - CHEST PAIN [None]
